FAERS Safety Report 12805313 (Version 1)
Quarter: 2016Q4

REPORT INFORMATION
  Report Type: Spontaneous
  Country: GB (occurrence: GB)
  Receive Date: 20161004
  Receipt Date: 20161004
  Transmission Date: 20170207
  Serious: Yes (Death, Other)
  Sender: FDA-Public Use
  Company Number: GB-APOTEX-2016AP012734

PATIENT
  Sex: Female

DRUGS (5)
  1. PAXIL [Suspect]
     Active Substance: PAROXETINE HYDROCHLORIDE
     Indication: DECREASED APPETITE
     Dosage: UNK
     Route: 065
     Dates: start: 1995
  2. NEUROFEN [Suspect]
     Active Substance: IBUPROFEN
     Indication: PRODUCT USED FOR UNKNOWN INDICATION
     Dosage: UNK
     Route: 065
     Dates: start: 2002
  3. FLUOXETINE [Concomitant]
     Active Substance: FLUOXETINE HYDROCHLORIDE
     Indication: PRODUCT USED FOR UNKNOWN INDICATION
     Dosage: UNK
     Route: 065
     Dates: start: 2012
  4. DIAZEPAM. [Concomitant]
     Active Substance: DIAZEPAM
     Indication: PRODUCT USED FOR UNKNOWN INDICATION
     Dosage: UNK
     Route: 065
     Dates: start: 20120804
  5. PARACETAMOL [Suspect]
     Active Substance: ACETAMINOPHEN
     Indication: PRODUCT USED FOR UNKNOWN INDICATION
     Dosage: UNK
     Route: 065
     Dates: start: 2002

REACTIONS (8)
  - Completed suicide [Fatal]
  - Intentional overdose [Recovered/Resolved]
  - Suicidal ideation [Recovered/Resolved]
  - Depressed mood [Unknown]
  - Self-injurious ideation [Unknown]
  - Disturbance in attention [Unknown]
  - Poor quality sleep [Unknown]
  - Depression [Unknown]

NARRATIVE: CASE EVENT DATE: 1995
